FAERS Safety Report 9456386 (Version 1)
Quarter: 2013Q3

REPORT INFORMATION
  Report Type: Spontaneous
  Country: US (occurrence: US)
  Receive Date: 20130813
  Receipt Date: 20130813
  Transmission Date: 20140515
  Serious: Yes (Hospitalization, Disabling, Other)
  Sender: FDA-Public Use
  Company Number: US-009507513-1205USA00951

PATIENT
  Sex: Female

DRUGS (6)
  1. FOSAMAX [Suspect]
     Indication: OSTEOPOROSIS
     Dosage: 10 MG, UNK
     Route: 048
  2. FOSAMAX [Suspect]
     Dosage: 70 MG, UNK
     Route: 048
     Dates: end: 2011
  3. FOSAMAX PLUS D [Suspect]
     Route: 048
  4. FOSAMAX [Suspect]
     Dosage: 70 MG, UNK
     Route: 048
  5. ALENDRONATE SODIUM [Suspect]
     Dosage: 70 MG, UNK
     Route: 048
  6. OS-CAL + D [Concomitant]
     Dosage: UNK, QD

REACTIONS (19)
  - Femur fracture [Unknown]
  - Open reduction of fracture [Unknown]
  - Hip arthroplasty [Recovered/Resolved]
  - Hip fracture [Unknown]
  - Thyroidectomy [Unknown]
  - Low turnover osteopathy [Unknown]
  - Osteoporosis [Unknown]
  - Stress fracture [Unknown]
  - Deep vein thrombosis [Recovering/Resolving]
  - Rib fracture [Unknown]
  - Hypertension [Not Recovered/Not Resolved]
  - Arthritis [Unknown]
  - Biopsy breast [Unknown]
  - Peripheral coldness [Unknown]
  - Arrhythmia [Recovered/Resolved]
  - Impaired healing [Unknown]
  - Hysterectomy [Unknown]
  - Pain in extremity [Unknown]
  - Gastrooesophageal reflux disease [Not Recovered/Not Resolved]
